FAERS Safety Report 17067457 (Version 2)
Quarter: 2019Q4

REPORT INFORMATION
  Report Type: Report from Study
  Country: US (occurrence: US)
  Receive Date: 20191122
  Receipt Date: 20191224
  Transmission Date: 20200122
  Serious: Yes (Hospitalization)
  Sender: FDA-Public Use
  Company Number: US-ACTELION-A-US2019-198664

PATIENT
  Age: 1 Year
  Sex: Female
  Weight: 6.35 kg

DRUGS (24)
  1. XOPENEX [Concomitant]
     Active Substance: LEVALBUTEROL HYDROCHLORIDE
  2. PULMICORT TURBUHALER [Concomitant]
     Active Substance: BUDESONIDE
     Dosage: UNK, BID
  3. SILDENAFIL. [Concomitant]
     Active Substance: SILDENAFIL
     Indication: PULMONARY HYPERTENSION
  4. DIAZEPAM. [Concomitant]
     Active Substance: DIAZEPAM
  5. TRACLEER [Suspect]
     Active Substance: BOSENTAN
     Dosage: 6.25 MG, BID
     Route: 048
  6. DIURIL [Concomitant]
     Active Substance: CHLOROTHIAZIDE
     Dosage: 20 MG/KG, BID
  7. PREVACID [Concomitant]
     Active Substance: LANSOPRAZOLE
     Indication: GASTROOESOPHAGEAL REFLUX DISEASE
     Dosage: UNK
     Dates: start: 20191107
  8. BETHANECHOL [Concomitant]
     Active Substance: BETHANECHOL
     Indication: GASTROOESOPHAGEAL REFLUX DISEASE
     Dosage: UNK
     Dates: start: 20191107
  9. MULTIVITAMIN AND MINERAL SUPPLEMENT [Concomitant]
     Active Substance: MINERALS\VITAMINS
  10. ACETAMINOPHEN. [Concomitant]
     Active Substance: ACETAMINOPHEN
  11. HYDROCORTISONE. [Concomitant]
     Active Substance: HYDROCORTISONE
  12. POLYETHYLENE GLYCOL [Concomitant]
     Active Substance: POLYETHYLENE GLYCOLS
  13. TRACLEER [Suspect]
     Active Substance: BOSENTAN
     Dosage: 3 MG, Q12HRS
     Route: 048
  14. CETIRIZINE [Concomitant]
     Active Substance: CETIRIZINE HYDROCHLORIDE
  15. SODIUM CHLORIDE. [Concomitant]
     Active Substance: SODIUM CHLORIDE
  16. LEVALBUTEROL. [Concomitant]
     Active Substance: LEVALBUTEROL
  17. MIRALAX [Concomitant]
     Active Substance: POLYETHYLENE GLYCOL 3350
  18. GLYCERIN. [Concomitant]
     Active Substance: GLYCERIN
  19. NYSTATIN. [Concomitant]
     Active Substance: NYSTATIN
  20. PETROLATUM. [Concomitant]
     Active Substance: PETROLATUM
  21. TRACLEER [Suspect]
     Active Substance: BOSENTAN
     Indication: PULMONARY ARTERIAL HYPERTENSION
     Dosage: 16 MG, BID
     Route: 048
  22. DORNASE [Concomitant]
     Active Substance: STREPTODORNASE\STREPTOKINASE
  23. POTASSIUM CHLORIDE. [Concomitant]
     Active Substance: POTASSIUM CHLORIDE
  24. CLONIDINE. [Concomitant]
     Active Substance: CLONIDINE

REACTIONS (19)
  - Enterovirus infection [Recovered/Resolved]
  - Feeding intolerance [Recovered/Resolved]
  - Vomiting [Recovered/Resolved]
  - Cough [Recovered/Resolved]
  - Nasal congestion [Recovered/Resolved]
  - Acute respiratory failure [Recovered/Resolved]
  - Dyspnoea [Recovered/Resolved]
  - Micturition frequency decreased [Recovered/Resolved]
  - Bronchiolitis [Recovered/Resolved]
  - Hepatosplenomegaly [Recovered/Resolved]
  - Bronchopulmonary dysplasia [Recovered/Resolved]
  - Secretion discharge [Recovered/Resolved]
  - Use of accessory respiratory muscles [Recovered/Resolved]
  - Pneumonia aspiration [Recovered/Resolved]
  - Rhinovirus infection [Recovered/Resolved]
  - Pulmonary oedema [Recovered/Resolved]
  - Pulmonary hypertension [Recovered/Resolved]
  - Obstructive airways disorder [Recovered/Resolved]
  - Breath sounds abnormal [Recovered/Resolved]

NARRATIVE: CASE EVENT DATE: 20191109
